FAERS Safety Report 18551747 (Version 1)
Quarter: 2020Q4

REPORT INFORMATION
  Report Type: Spontaneous
  Country: US (occurrence: US)
  Receive Date: 20201126
  Receipt Date: 20201126
  Transmission Date: 20210114
  Serious: Yes (Other)
  Sender: FDA-Public Use
  Company Number: US-009507513-2011USA015085

PATIENT
  Age: 67 Year
  Sex: Male
  Weight: 97.5 kg

DRUGS (17)
  1. NEXIUM [Suspect]
     Active Substance: ESOMEPRAZOLE MAGNESIUM
     Indication: HIATUS HERNIA
     Dosage: 40 MILLIGRAM, QD
     Route: 048
  2. PRINIVIL [Suspect]
     Active Substance: LISINOPRIL
     Indication: HYPERTENSION
     Dosage: 20 MILLIGRAM, QD
     Route: 048
     Dates: start: 2000
  3. SYMBICORT [Suspect]
     Active Substance: BUDESONIDE\FORMOTEROL FUMARATE DIHYDRATE
     Indication: ASTHMA
     Dosage: 2 PUFFS DAILY
     Route: 055
     Dates: start: 2004
  4. CLONAZEPAM. [Concomitant]
     Active Substance: CLONAZEPAM
     Indication: MYOCLONUS
     Dosage: 0.5 MILLIGRAM, QD
     Route: 048
  5. MIRTAZAPINE. [Concomitant]
     Active Substance: MIRTAZAPINE
     Indication: MENTAL DISORDER
     Dosage: 30 MILLIGRAM, QD
     Route: 048
     Dates: start: 201104
  6. RISPERIDONE. [Concomitant]
     Active Substance: RISPERIDONE
     Indication: MENTAL DISORDER
     Dosage: 0.25 MILLIGRAM, QD
     Route: 048
     Dates: start: 201106
  7. INDOMETHACIN. [Concomitant]
     Active Substance: INDOMETHACIN
     Indication: GOUT
     Dosage: 50 MILLIGRAM
     Route: 048
     Dates: start: 2011
  8. MAXAIR [Concomitant]
     Active Substance: PIRBUTEROL ACETATE
     Indication: KINESITHERAPY
     Dosage: UNKNOWN PRN
     Route: 055
  9. CALCIUM (UNSPECIFIED) [Concomitant]
     Active Substance: CALCIUM
     Dosage: UNKNOWN UNK
  10. CHOLECALCIFEROL [Concomitant]
     Active Substance: CHOLECALCIFEROL
     Dosage: UNKNOWN UNK
  11. HYDROCHLOROTHIAZIDE. [Concomitant]
     Active Substance: HYDROCHLOROTHIAZIDE
     Indication: BLOOD PRESSURE ABNORMAL
     Dosage: 12.5 MILLIGRAM
     Route: 048
     Dates: start: 2009
  12. NEXIUM [Suspect]
     Active Substance: ESOMEPRAZOLE MAGNESIUM
     Indication: GASTROOESOPHAGEAL REFLUX DISEASE
  13. PRILOSEC [Suspect]
     Active Substance: OMEPRAZOLE MAGNESIUM
     Indication: INFLAMMATION
     Dosage: 40 MILLIGRAM, QD
     Route: 048
     Dates: start: 2001, end: 2001
  14. PRILOSEC [Suspect]
     Active Substance: OMEPRAZOLE MAGNESIUM
     Indication: HIATUS HERNIA
  15. MAGNESIUM (UNSPECIFIED) [Concomitant]
     Active Substance: MAGNESIUM
     Dosage: UNKNOWN UNK
  16. NEXIUM [Suspect]
     Active Substance: ESOMEPRAZOLE MAGNESIUM
     Indication: OESOPHAGITIS
     Dosage: 40 MILLIGRAM, QD
     Route: 048
     Dates: start: 2001, end: 20140505
  17. PRILOSEC [Suspect]
     Active Substance: OMEPRAZOLE MAGNESIUM
     Indication: GASTROOESOPHAGEAL REFLUX DISEASE

REACTIONS (9)
  - Gastrooesophageal reflux disease [Unknown]
  - Diarrhoea [Unknown]
  - Intentional product misuse [Unknown]
  - Nasal septum deviation [Unknown]
  - Depression [Unknown]
  - Off label use [Unknown]
  - Oesophageal stenosis [Unknown]
  - Abdominal pain upper [Unknown]
  - Myoclonus [Unknown]

NARRATIVE: CASE EVENT DATE: 2001
